FAERS Safety Report 5224231-6 (Version None)
Quarter: 2007Q1

REPORT INFORMATION
  Report Type: 
  Country: None (occurrence: None)
  Receive Date: 20070130
  Receipt Date: 20070118
  Transmission Date: 20070707
  Serious: Yes (Hospitalization)
  Sender: FDA-Public Use
  Company Number: UA-SHR-UA-2006-041210

PATIENT
  Age: 52 Year
  Sex: Female

DRUGS (5)
  1. CAMPATH 10 /1ML [Suspect]
     Dosage: 30 MG/D,
     Route: 042
     Dates: start: 20060904, end: 20061128
  2. FLUDARABINE PHOSPHAT (SH L 573) [Suspect]
     Dosage: 54 MG/D, UNK
     Route: 042
     Dates: start: 20060904, end: 20061128
  3. ACYCLOVIR [Concomitant]
     Indication: INFECTION PROPHYLAXIS
     Route: 048
     Dates: start: 20060901
  4. COTRIM [Concomitant]
     Indication: INFECTION PROPHYLAXIS
     Route: 048
     Dates: start: 20060901
  5. ARGININE [Concomitant]
     Dosage: 750 MG, UNK
     Route: 048
     Dates: start: 20060905, end: 20061227

REACTIONS (1)
  - HEPATITIS TOXIC [None]
